FAERS Safety Report 21240105 (Version 1)
Quarter: 2022Q3

REPORT INFORMATION
  Report Type: Spontaneous
  Country: SV (occurrence: None)
  Receive Date: 20220821
  Receipt Date: 20220821
  Transmission Date: 20221027
  Serious: Yes (Hospitalization, Disabling)
  Sender: FDA-Public Use
  Company Number: None

PATIENT
  Age: 19 Year
  Sex: Male
  Weight: 51 kg

DRUGS (2)
  1. TRYPTIZOL [Suspect]
     Active Substance: AMITRIPTYLINE HYDROCHLORIDE
     Indication: Insomnia
     Dates: start: 2020, end: 20201125
  2. LORAZEPAM [Suspect]
     Active Substance: LORAZEPAM

REACTIONS (4)
  - Erectile dysfunction [None]
  - Gastrointestinal disorder [None]
  - Micturition disorder [None]
  - Drug dependence [None]

NARRATIVE: CASE EVENT DATE: 20200111
